FAERS Safety Report 9310881 (Version 1)
Quarter: 2013Q2

REPORT INFORMATION
  Report Type: Spontaneous
  Country: IT (occurrence: IT)
  Receive Date: 20130528
  Receipt Date: 20130528
  Transmission Date: 20140414
  Serious: Yes (Other)
  Sender: FDA-Public Use
  Company Number: IT-TEVA-405087ISR

PATIENT
  Age: 76 Year
  Sex: Male

DRUGS (4)
  1. OXALIPLATINO TEVA 5 MG/ML CONCENTRADO PARA SOLUCI?N PARA PERFUSION [Suspect]
     Indication: ADENOCARCINOMA OF COLON
     Dosage: 230 MILLIGRAM DAILY; CONCENTRATE FOR SOLUTION FOR INFUSION
     Route: 040
     Dates: start: 20130506, end: 20130506
  2. ZANEDIP [Concomitant]
     Indication: ESSENTIAL HYPERTENSION
     Dosage: 10 MILLIGRAM DAILY;
     Route: 048
  3. CARDIOASPIRIN [Concomitant]
     Indication: THROMBOSIS PROPHYLAXIS
     Dosage: 100 MILLIGRAM DAILY; GASTRO-RESISTANT TABLETS
     Route: 048
  4. BLOPRESID [Concomitant]
     Indication: ESSENTIAL HYPERTENSION
     Dosage: 28.5 MILLIGRAM DAILY;
     Route: 048

REACTIONS (2)
  - Choking sensation [Recovered/Resolved with Sequelae]
  - Asthenia [Recovered/Resolved with Sequelae]
